FAERS Safety Report 5973883-1 (Version None)
Quarter: 2008Q4

REPORT INFORMATION
  Report Type: 
  Country: None (occurrence: None)
  Receive Date: 20081125
  Receipt Date: 20081119
  Transmission Date: 20090506
  Serious: No
  Sender: FDA-Public Use
  Company Number: US023360

PATIENT
  Age: 53 Year
  Sex: Male

DRUGS (1)
  1. FENTORA [Suspect]
     Indication: PAIN
     Dosage: 800 UG BUCCAL
     Route: 002
     Dates: start: 20070222

REACTIONS (1)
  - MEDICATION ERROR [None]
